FAERS Safety Report 7532796-4 (Version None)
Quarter: 2011Q2

REPORT INFORMATION
  Report Type: 
  Country: None (occurrence: None)
  Receive Date: 20110608
  Receipt Date: 20110603
  Transmission Date: 20111010
  Serious: Yes (Other)
  Sender: FDA-Public Use
  Company Number: B0724613A

PATIENT
  Age: 67 Year
  Sex: Male

DRUGS (1)
  1. AVANDIA [Suspect]
     Route: 048
     Dates: start: 20070201, end: 20080201

REACTIONS (3)
  - STENT PLACEMENT [None]
  - CEREBROVASCULAR ACCIDENT [None]
  - HEADACHE [None]
